FAERS Safety Report 17610799 (Version 1)
Quarter: 2020Q1

REPORT INFORMATION
  Report Type: Spontaneous
  Country: US (occurrence: US)
  Receive Date: 20200330
  Receipt Date: 20200330
  Transmission Date: 20200409
  Serious: Yes (Hospitalization)
  Sender: FDA-Public Use
  Company Number: None

PATIENT
  Age: 61 Year
  Sex: Male

DRUGS (1)
  1. IBUPROFEN (IBUPROFEN 800MG TAB) [Suspect]
     Active Substance: IBUPROFEN
     Indication: PAIN
     Dosage: ?          OTHER FREQUENCY:SLIDING SCALE;?
     Route: 048
     Dates: start: 20160606, end: 20190118

REACTIONS (4)
  - Angioedema [None]
  - Alcohol withdrawal syndrome [None]
  - Lip swelling [None]
  - Aggression [None]

NARRATIVE: CASE EVENT DATE: 20190118
